FAERS Safety Report 20343038 (Version 1)
Quarter: 2022Q1

REPORT INFORMATION
  Report Type: Spontaneous
  Country: US (occurrence: US)
  Receive Date: 20220117
  Receipt Date: 20220117
  Transmission Date: 20220423
  Serious: No
  Sender: FDA-Public Use
  Company Number: US-TAKEDA-2022TUS002283

PATIENT
  Sex: Female

DRUGS (3)
  1. PENTASA [Suspect]
     Active Substance: MESALAMINE
     Indication: Inflammatory bowel disease
     Dosage: 500 MILLIGRAM
     Route: 065
  2. PENTASA [Suspect]
     Active Substance: MESALAMINE
     Dosage: 1 GRAM, QID
     Route: 065
  3. PREVACID [Concomitant]
     Active Substance: LANSOPRAZOLE
     Dosage: UNK
     Route: 065

REACTIONS (2)
  - Product residue present [Unknown]
  - Wrong technique in product usage process [Unknown]
